FAERS Safety Report 5581945-6 (Version None)
Quarter: 2008Q1

REPORT INFORMATION
  Report Type: 
  Country: None (occurrence: None)
  Receive Date: 20080104
  Receipt Date: 20071221
  Transmission Date: 20080703
  Serious: Yes (Hospitalization, Disabling, Other)
  Sender: FDA-Public Use
  Company Number: B0496923A

PATIENT
  Sex: Male

DRUGS (3)
  1. AVANDIA [Suspect]
     Route: 048
  2. METFORMIN [Concomitant]
     Route: 048
  3. GLIPIZIDE [Concomitant]
     Dosage: 10G PER DAY
     Route: 048

REACTIONS (1)
  - NEUROPATHIC ARTHROPATHY [None]
